FAERS Safety Report 7969170-2 (Version None)
Quarter: 2011Q4

REPORT INFORMATION
  Report Type: 
  Country: None (occurrence: None)
  Receive Date: 20111209
  Receipt Date: 20111208
  Transmission Date: 20120403
  Serious: Yes (Hospitalization)
  Sender: FDA-Public Use
  Company Number: DE-ABBOTT-11P-062-0724482-00

PATIENT
  Sex: Male
  Weight: 72.5 kg

DRUGS (1)
  1. HUMIRA [Suspect]
     Indication: PSORIASIS
     Dates: start: 20110113, end: 20111018

REACTIONS (2)
  - HYPERTENSION [None]
  - CEREBRAL THROMBOSIS [None]
